FAERS Safety Report 8271785 (Version 3)
Quarter: 2014Q1

REPORT INFORMATION
  Report Type: Report from Study
  Country: DE (occurrence: DE)
  Receive Date: 20111202
  Receipt Date: 20140113
  Transmission Date: 20141002
  Serious: Yes (Life-Threatening, Hospitalization)
  Sender: FDA-Public Use
  Company Number: DE-BRISTOL-MYERS SQUIBB COMPANY-15975154

PATIENT
  Age: 63 Year
  Sex: Male

DRUGS (4)
  1. ABATACEPT [Suspect]
     Dates: start: 201012
  2. METHOTREXATE [Suspect]
     Dosage: FEB12-
     Route: 048
     Dates: start: 198910, end: 201202
  3. ARAVA [Suspect]
     Dates: start: 201007
  4. PREDNISOLONE [Concomitant]

REACTIONS (5)
  - Cardiovascular disorder [Recovered/Resolved]
  - Respiratory distress [Recovered/Resolved]
  - Infusion related reaction [Recovered/Resolved]
  - Bladder cancer [Not Recovered/Not Resolved]
  - Nephrolithiasis [Not Recovered/Not Resolved]
